FAERS Safety Report 10993532 (Version 1)
Quarter: 2015Q2

REPORT INFORMATION
  Report Type: Spontaneous
  Country: None (occurrence: None)
  Receive Date: 20150406
  Receipt Date: 20150406
  Transmission Date: 20150821
  Serious: No
  Sender: FDA-Public Use
  Company Number: None

PATIENT
  Age: 29 Year
  Sex: Female
  Weight: 58.97 kg

DRUGS (1)
  1. TRAZODONE [Suspect]
     Active Substance: TRAZODONE HYDROCHLORIDE
     Indication: SLEEP DISORDER THERAPY
     Dosage: 3 TABLETS
     Route: 048

REACTIONS (5)
  - Initial insomnia [None]
  - Somnolence [None]
  - Nasal congestion [None]
  - Abnormal dreams [None]
  - Nasal obstruction [None]

NARRATIVE: CASE EVENT DATE: 20150404
